FAERS Safety Report 4456566-9 (Version None)
Quarter: 2004Q3

REPORT INFORMATION
  Report Type: 
  Country: None (occurrence: None)
  Receive Date: 20040921
  Receipt Date: 20040908
  Transmission Date: 20050211
  Serious: Yes (Life-Threatening, Hospitalization)
  Sender: FDA-Public Use
  Company Number: 2004063421

PATIENT
  Age: 73 Year
  Sex: Female
  Weight: 40 kg

DRUGS (10)
  1. SULPERAZON (CEFOPERAZONE, SULBACTAM) [Suspect]
     Indication: ILL-DEFINED DISORDER
     Dosage: 2 GRAM, INTRAVENOUS
     Route: 042
     Dates: start: 19970701, end: 20040903
  2. MAGNESIUM OXIDE HEAVY (MAGNESIUM OXIDE HEAVY) [Concomitant]
  3. STOMILASE (ENZYMES NOS) [Concomitant]
  4. AMBROXOL HYDROCHLORIDE (AMBROXOL HYDROCHLORIDE) [Concomitant]
  5. REBAMIPIDE (REBAMIPIDE) [Concomitant]
  6. MOSAPRIDE CITRATE (MOSAPRIDE CITRATE) [Concomitant]
  7. OLOPATADINE HYDROCHLORIDE (OLOPATADINE HYDROCHLORIDE) [Concomitant]
  8. FERROUS CITRATE [Concomitant]
  9. SALMETEROL XINAFOATE (SALMETEROL XINAFOATE) [Concomitant]
  10. LEVOTHYROXINE SODIUM [Concomitant]

REACTIONS (4)
  - ANAPHYLACTIC SHOCK [None]
  - BLOOD PRESSURE SYSTOLIC INCREASED [None]
  - CYANOSIS [None]
  - ORTHOPNOEA [None]
